FAERS Safety Report 18211693 (Version 1)
Quarter: 2020Q3

REPORT INFORMATION
  Report Type: Other
  Country: US (occurrence: US)
  Receive Date: 20200831
  Receipt Date: 20200831
  Transmission Date: 20201103
  Serious: Yes (Other)
  Sender: FDA-Public Use
  Company Number: US-ROCHE-2665553

PATIENT
  Age: 47 Year
  Sex: Female
  Weight: 70.37 kg

DRUGS (1)
  1. OCREVUS [Suspect]
     Active Substance: OCRELIZUMAB
     Indication: RELAPSING MULTIPLE SCLEROSIS
     Dosage: 1ST DOSE 2 X 300 MG IV Q 2 WEEKS
     Route: 042
     Dates: start: 201903

REACTIONS (4)
  - Nasal congestion [Unknown]
  - Fatigue [Unknown]
  - Insomnia [Unknown]
  - Multiple sclerosis relapse [Not Recovered/Not Resolved]

NARRATIVE: CASE EVENT DATE: 201903
